FAERS Safety Report 8848749 (Version 2)
Quarter: 2012Q4

REPORT INFORMATION
  Report Type: Report from Study
  Country: US (occurrence: US)
  Receive Date: 20121018
  Receipt Date: 20121107
  Transmission Date: 20130627
  Serious: Yes (Hospitalization)
  Sender: FDA-Public Use
  Company Number: US-AMGEN-USACT2012066142

PATIENT
  Age: 60 Year
  Sex: Female
  Weight: 89.9 kg

DRUGS (24)
  1. PANITUMUMAB [Suspect]
     Indication: BILE DUCT CANCER
     Dosage: 6 mg/kg, q2wk
     Route: 042
     Dates: start: 20110316
  2. OXALIPLATIN [Concomitant]
     Indication: BILE DUCT CANCER
     Dosage: 47 mg/m2, q2wk
     Route: 042
     Dates: start: 20110316
  3. GEMCITABINE [Concomitant]
     Indication: BILE DUCT CANCER
     Dosage: 562 mg/m2, q2wk
     Route: 042
     Dates: start: 20110316
  4. METHYLPHENIDATE [Concomitant]
     Dosage: 10 mg, bid
     Route: 048
  5. MINOCYCLINE [Concomitant]
     Dosage: 100 mg, bid
     Route: 048
     Dates: start: 20120718, end: 20121016
  6. LOVENOX [Concomitant]
     Dosage: 80 mg, bid
     Route: 058
     Dates: end: 20121002
  7. ONDANSETRON [Concomitant]
     Dosage: 8 mg, tid
     Route: 048
  8. LOMOTIL [Concomitant]
     Dosage: UNK UNK, prn
     Route: 048
  9. OXYCODONE [Concomitant]
     Dosage: 5 mg, prn
     Route: 048
  10. SIMVASTATIN [Concomitant]
     Dosage: 20 mg, UNK
     Route: 048
  11. LISINOPRIL [Concomitant]
     Dosage: 40 mg, qd
     Route: 048
  12. GABAPENTIN [Concomitant]
     Dosage: 600 mg, bid
     Route: 048
  13. PROCHLORPERAZINE [Concomitant]
     Dosage: 10 mg, prn
     Route: 048
  14. MAGNESIUM OXIDE [Concomitant]
     Dosage: 400 mg, bid
     Route: 048
  15. LORATADINE [Concomitant]
     Dosage: 10 mg, UNK
     Route: 048
  16. ALBUTEROL [Concomitant]
     Dosage: UNK UNK, prn
     Route: 045
  17. THERAGRAN [Concomitant]
     Dosage: UNK UNK, qd
     Route: 048
  18. TIMOLOL [Concomitant]
     Dosage: 1 Gtt, qd
     Route: 047
  19. ROPINIROLE [Concomitant]
     Dosage: .75 mg, qd
     Route: 048
  20. FERROUS FUMARATE W/FOLIC ACID/VITAMINS NOS [Concomitant]
     Dosage: UNK UNK, qd
     Route: 048
  21. CALCIUM CARBONATE W/VITAMIN D [Concomitant]
     Dosage: UNK UNK, qd
     Route: 048
  22. DALTEPARIN [Concomitant]
     Indication: DEEP VEIN THROMBOSIS
  23. HEPARIN [Concomitant]
     Dosage: UNK
     Dates: end: 20121011
  24. LASIX [Concomitant]

REACTIONS (5)
  - Colitis [Unknown]
  - Intra-abdominal haemorrhage [Unknown]
  - Abdominal wall haematoma [Unknown]
  - Diarrhoea [Recovered/Resolved]
  - Nausea [Not Recovered/Not Resolved]
